FAERS Safety Report 5946157-2 (Version None)
Quarter: 2008Q4

REPORT INFORMATION
  Report Type: 
  Country: None (occurrence: None)
  Receive Date: 20081106
  Receipt Date: 20081106
  Transmission Date: 20090506
  Serious: Yes (Hospitalization)
  Sender: FDA-Public Use
  Company Number: None

PATIENT
  Age: 83 Year

DRUGS (1)
  1. DIGOXIN [Suspect]
     Indication: CARDIAC FAILURE CONGESTIVE
     Dosage: 0.125 MG EVERY DAY PO
     Route: 048
     Dates: start: 20070711, end: 20070912

REACTIONS (3)
  - DERMATITIS CONTACT [None]
  - HYPERSENSITIVITY [None]
  - RASH [None]
